FAERS Safety Report 8462898-X (Version None)
Quarter: 2012Q2

REPORT INFORMATION
  Report Type: 
  Country: None (occurrence: None)
  Receive Date: 20120625
  Receipt Date: 20120622
  Transmission Date: 20120825
  Serious: No
  Sender: FDA-Public Use
  Company Number: US-PFIZER INC-2012150926

PATIENT
  Sex: Female
  Weight: 47.62 kg

DRUGS (3)
  1. CELEBREX [Suspect]
     Indication: TENDONITIS
     Dosage: 200 MG, DAILY
     Dates: start: 20120601, end: 20120621
  2. RESTASIS [Concomitant]
     Indication: DRY EYE
     Dosage: UNK, 2X/DAY
  3. CELEBREX [Suspect]
     Indication: ARTHRITIS

REACTIONS (2)
  - INCORRECT DOSE ADMINISTERED [None]
  - RASH [None]
